FAERS Safety Report 18713419 (Version 3)
Quarter: 2021Q1

REPORT INFORMATION
  Report Type: Spontaneous
  Country: US (occurrence: US)
  Receive Date: 20210107
  Receipt Date: 20210330
  Transmission Date: 20210419
  Serious: Yes (Death, Hospitalization)
  Sender: FDA-Public Use
  Company Number: US-ELI_LILLY_AND_COMPANY-US202012013997

PATIENT
  Age: 73 Year
  Sex: Male
  Weight: 69.9 kg

DRUGS (1)
  1. BAMLANIVIMAB 700MG [Suspect]
     Active Substance: BAMLANIVIMAB
     Indication: COVID-19
     Dosage: 700 MG, SINGLE
     Route: 041
     Dates: start: 20201215, end: 20201215

REACTIONS (6)
  - Aphasia [Unknown]
  - COVID-19 [Fatal]
  - Lethargy [Unknown]
  - Mental status changes [Unknown]
  - Pneumonia aspiration [Fatal]
  - Encephalopathy [Unknown]

NARRATIVE: CASE EVENT DATE: 20201221
